FAERS Safety Report 24828440 (Version 1)
Quarter: 2025Q1

REPORT INFORMATION
  Report Type: Spontaneous
  Country: MX (occurrence: MX)
  Receive Date: 20250110
  Receipt Date: 20250110
  Transmission Date: 20250408
  Serious: Yes (Other)
  Sender: JOHNSON AND JOHNSON
  Company Number: MX-JNJFOC-20230744944

PATIENT

DRUGS (3)
  1. PREZCOBIX [Suspect]
     Active Substance: COBICISTAT\DARUNAVIR ETHANOLATE
     Indication: Product used for unknown indication
     Route: 065
  2. ZIDOVUDINE [Suspect]
     Active Substance: ZIDOVUDINE
     Indication: Product used for unknown indication
     Route: 065
  3. TENOFOVIR DISOPROXIL [Suspect]
     Active Substance: TENOFOVIR DISOPROXIL
     Indication: Product used for unknown indication
     Route: 065

REACTIONS (1)
  - Lipodystrophy acquired [Unknown]
